FAERS Safety Report 7673374-6 (Version None)
Quarter: 2011Q3

REPORT INFORMATION
  Report Type: 
  Country: None (occurrence: None)
  Receive Date: 20110810
  Receipt Date: 20110803
  Transmission Date: 20111222
  Serious: Yes (Hospitalization, Other)
  Sender: FDA-Public Use
  Company Number: US-BAYER-US-2006-025210

PATIENT
  Age: 53 Year
  Sex: Female
  Weight: 81.633 kg

DRUGS (8)
  1. ISOSORBIDE MONONITRATE [Concomitant]
     Dosage: 30 MG, 1X/DAY
     Route: 048
     Dates: start: 19990101
  2. BETASERON [Suspect]
     Dosage: 8 MIU, QOD
     Route: 058
  3. METHYLPHENIDATE HCL [Concomitant]
     Indication: FATIGUE
     Dosage: 10 MG, 2X/DAY
  4. FLUVASTATIN [Concomitant]
     Dosage: 80 MG, 1X/DAY
     Route: 048
     Dates: start: 19990101
  5. ALCOHOL [Concomitant]
  6. ATENOLOL [Concomitant]
     Dosage: 25 MG, 2X/DAY
     Route: 048
     Dates: start: 19990101
  7. DILTIAZEM [Concomitant]
     Dosage: 240 MG, 1X/DAY
     Route: 048
     Dates: start: 19990101
  8. BETASERON [Suspect]
     Indication: RELAPSING-REMITTING MULTIPLE SCLEROSIS
     Dosage: 8 MIU, QOD
     Route: 058
     Dates: start: 19940808

REACTIONS (9)
  - INJECTION SITE ERYTHEMA [None]
  - DEPRESSION [None]
  - INJECTION SITE SCAR [None]
  - MYOCARDIAL INFARCTION [None]
  - CARDIAC DISORDER [None]
  - INJECTION SITE INFECTION [None]
  - MULTIPLE SCLEROSIS [None]
  - INJECTION SITE PAIN [None]
  - INJECTION SITE MASS [None]
